FAERS Safety Report 21246866 (Version 1)
Quarter: 2022Q3

REPORT INFORMATION
  Report Type: Spontaneous
  Country: US (occurrence: US)
  Receive Date: 20220824
  Receipt Date: 20220824
  Transmission Date: 20221027
  Serious: Yes (Death, Life-Threatening, Hospitalization)
  Sender: FDA-Public Use
  Company Number: US-drreddys-LIT/USA/22/0153576

PATIENT
  Age: 79 Year
  Sex: Female

DRUGS (2)
  1. DECITABINE [Suspect]
     Active Substance: DECITABINE
     Indication: Acute myeloid leukaemia recurrent
  2. VENETOCLAX [Suspect]
     Active Substance: VENETOCLAX
     Indication: Acute myeloid leukaemia recurrent

REACTIONS (6)
  - Death [Fatal]
  - Acute myeloid leukaemia refractory [Unknown]
  - Leukaemia cutis [Recovering/Resolving]
  - Febrile neutropenia [Not Recovered/Not Resolved]
  - Pancytopenia [Unknown]
  - Neutropenic colitis [Unknown]
